FAERS Safety Report 5090636-X (Version None)
Quarter: 2006Q3

REPORT INFORMATION
  Report Type: 
  Country: None (occurrence: None)
  Receive Date: 20060828
  Receipt Date: 20060808
  Transmission Date: 20061208
  Serious: Yes (Hospitalization)
  Sender: FDA-Public Use
  Company Number: 2006UW15814

PATIENT
  Age: 9272 Day
  Sex: Female

DRUGS (4)
  1. SEROQUEL [Suspect]
     Indication: BIPOLAR I DISORDER
     Dosage: VISIT 4-23
     Route: 048
     Dates: start: 20060621
  2. SEROQUEL [Suspect]
     Dosage: RUN-IN PHASE
     Route: 048
     Dates: start: 20060712
  3. METABOLIFE [Concomitant]
     Route: 048
     Dates: start: 20060504
  4. DEPAKOTE [Concomitant]
     Indication: BIPOLAR DISORDER
     Route: 048
     Dates: start: 20060419

REACTIONS (2)
  - ANGER [None]
  - SUICIDAL IDEATION [None]
